FAERS Safety Report 9658910 (Version 1)
Quarter: 2013Q4

REPORT INFORMATION
  Report Type: Report from Study
  Country: US (occurrence: US)
  Receive Date: 20131030
  Receipt Date: 20131030
  Transmission Date: 20140711
  Serious: No
  Sender: FDA-Public Use
  Company Number: US-009507513-1310USA012284

PATIENT
  Age: 62 Year
  Sex: Female

DRUGS (14)
  1. VICTRELIS [Suspect]
     Indication: HEPATITIS C
     Dosage: UNK
     Route: 048
  2. PEGASYS [Suspect]
     Indication: HEPATITIS C
     Dosage: 180 MICROGRAM, QW
     Route: 058
     Dates: start: 20130629
  3. COPEGUS [Suspect]
     Indication: HEPATITIS C
     Dosage: 1000 MG
     Route: 048
  4. COPEGUS [Suspect]
     Dosage: 200 MG, BID, 3 TABLETS IN THE MORNING, 2 TABLETS IN EVENING
     Route: 048
     Dates: start: 20130629
  5. COPEGUS [Suspect]
     Dosage: 200 MG, BID, 2 TABLETS IN THE MORNING, ONE IN EVENING
     Route: 048
     Dates: start: 20131002
  6. HYDROCHLOROTHIAZIDE [Concomitant]
     Dosage: 25 MG, QAM
     Route: 048
  7. ATACAND [Concomitant]
     Indication: HYPERTENSION
     Dosage: 8 MG, QPM
     Route: 048
  8. GABAPENTIN [Concomitant]
  9. NORCO [Concomitant]
  10. ALBUTEROL [Concomitant]
     Indication: CHRONIC OBSTRUCTIVE PULMONARY DISEASE
     Dosage: 1 DF, PRN
     Route: 055
  11. PROVENTIL [Concomitant]
     Indication: CHRONIC OBSTRUCTIVE PULMONARY DISEASE
     Dosage: 1 DF, PRN
     Route: 055
  12. NEXIUM [Concomitant]
     Indication: GASTRIC ULCER
  13. NEXIUM [Concomitant]
     Indication: OESOPHAGEAL DISORDER
  14. CARAFATE [Concomitant]
     Indication: OESOPHAGEAL DISORDER

REACTIONS (8)
  - Cold sweat [Not Recovered/Not Resolved]
  - Decreased appetite [Not Recovered/Not Resolved]
  - Tremor [Not Recovered/Not Resolved]
  - Dizziness [Not Recovered/Not Resolved]
  - Blood glucose decreased [Not Recovered/Not Resolved]
  - Haemoglobin decreased [Not Recovered/Not Resolved]
  - Weight decreased [Not Recovered/Not Resolved]
  - Dysgeusia [Not Recovered/Not Resolved]
